FAERS Safety Report 8071739 (Version 4)
Quarter: 2014Q2

REPORT INFORMATION
  Report Type: Spontaneous
  Country: US (occurrence: US)
  Receive Date: 20110805
  Receipt Date: 20131018
  Transmission Date: 20141212
  Serious: Yes (Other)
  Sender: FDA-Public Use
  Company Number: US-PFIZER INC-2011178078

PATIENT
  Age: 66 Year
  Sex: Female
  Weight: 86 kg

DRUGS (10)
  1. CALAN SR [Suspect]
     Indication: HYPERTENSION
     Dosage: 240 MG, 1X/DAY
     Route: 065
     Dates: start: 2006
  2. CALAN SR [Suspect]
     Indication: PALPITATIONS
     Dosage: 120 MG, 1X/DAY
     Route: 065
     Dates: start: 2006
  3. VERAPAMIL HCL [Suspect]
     Indication: PALPITATIONS
     Dosage: 120 MG, UNK
     Route: 065
  4. VERAPAMIL HCL [Suspect]
     Indication: HYPERTENSION
  5. CORTISONE [Suspect]
     Indication: PALPITATIONS
     Dosage: 180 MG, UNK
     Route: 065
  6. CORTISONE [Suspect]
     Indication: HYPERTENSION
     Route: 065
  7. ARIMIDEX [Suspect]
     Indication: BREAST CANCER
     Dosage: UNK, 1X/DAY
     Route: 048
  8. ANASTROZOLE [Suspect]
     Indication: BREAST CANCER
     Dosage: UNK
     Route: 048
  9. LEVOXYL [Concomitant]
     Indication: HYPERTHYROIDISM
     Dosage: 0.05 MG, UNK
     Route: 048
  10. LEVOTHYROXINE SODIUM [Concomitant]
     Dosage: UNK

REACTIONS (4)
  - Breast cancer [Unknown]
  - Ventricular extrasystoles [Unknown]
  - Drug ineffective [Unknown]
  - Off label use [Unknown]
